FAERS Safety Report 4274390-7 (Version None)
Quarter: 2004Q1

REPORT INFORMATION
  Report Type: 
  Country: None (occurrence: None)
  Receive Date: 20040120
  Receipt Date: 20020820
  Transmission Date: 20041129
  Serious: Yes (Hospitalization)
  Sender: FDA-Public Use
  Company Number: US-BRISTOL-MYERS SQUIBB COMPANY-12005369

PATIENT
  Age: 55 Year
  Sex: Female

DRUGS (8)
  1. ATORVASTATIN [Suspect]
     Dosage: LAST DOSE PRIOR TO EVENT WAS IN FEB-2002
     Route: 048
     Dates: start: 20010716
  2. PLACEBO [Suspect]
     Dosage: LAST DOSE PRIOR TO EVENT WAS IN FEB-2002
     Route: 048
     Dates: start: 20010802
  3. METOPROLOL TARTRATE [Suspect]
     Route: 048
     Dates: start: 20010712
  4. ASPIRIN [Concomitant]
     Route: 048
     Dates: start: 20010712
  5. CAPTOPRIL [Concomitant]
     Route: 048
     Dates: start: 20010712
  6. PROZAC [Concomitant]
     Route: 048
  7. PRILOSEC [Concomitant]
     Route: 048
  8. IMDUR [Concomitant]
     Route: 048
     Dates: start: 20010714

REACTIONS (3)
  - ASTHMA [None]
  - CHRONIC OBSTRUCTIVE AIRWAYS DISEASE [None]
  - CHRONIC OBSTRUCTIVE AIRWAYS DISEASE EXACERBATED [None]
